FAERS Safety Report 19068525 (Version 1)
Quarter: 2021Q1

REPORT INFORMATION
  Report Type: Spontaneous
  Country: US (occurrence: US)
  Receive Date: 20210328
  Receipt Date: 20210328
  Transmission Date: 20210420
  Serious: Yes (Other)
  Sender: FDA-Public Use
  Company Number: None

PATIENT
  Age: 43 Year
  Sex: Female
  Weight: 81 kg

DRUGS (4)
  1. HERBAL SUPPLEMENTS [Concomitant]
     Active Substance: HERBALS
  2. SMARTY PANTS WOMEN^S ORGANIC GUMMY VITAMINS [Concomitant]
  3. MONTELUKAST (GENERIC FOR SINGULAIR) [Suspect]
     Active Substance: MONTELUKAST SODIUM
     Indication: ASTHMA
     Route: 048
     Dates: start: 20181213, end: 20210316
  4. REISHI SPORE POWDER [Concomitant]

REACTIONS (10)
  - Depression [None]
  - Sinus disorder [None]
  - Weight increased [None]
  - Anxiety [None]
  - Apathy [None]
  - Depressed level of consciousness [None]
  - Food allergy [None]
  - Inflammation [None]
  - Condition aggravated [None]
  - Gastrointestinal disorder [None]
